FAERS Safety Report 13664813 (Version 1)
Quarter: 2017Q2

REPORT INFORMATION
  Report Type: Report from Study
  Country: ES (occurrence: ES)
  Receive Date: 20170619
  Receipt Date: 20170619
  Transmission Date: 20170830
  Serious: Yes (Other)
  Sender: FDA-Public Use
  Company Number: ES-ELI_LILLY_AND_COMPANY-ES201706006703

PATIENT
  Sex: Male

DRUGS (3)
  1. PENTOXIFILLINE [Concomitant]
     Indication: PEYRONIE^S DISEASE
     Dosage: 400 MG, BID
     Route: 065
  2. TADALAFIL [Suspect]
     Active Substance: TADALAFIL
     Indication: PEYRONIE^S DISEASE
     Dosage: 5 MG, DAILY
     Route: 065
  3. XIAFLEX [Concomitant]
     Active Substance: COLLAGENASE CLOSTRIDIUM HISTOLYTICUM
     Indication: PEYRONIE^S DISEASE
     Dosage: 0.58 MG, CYCLICAL
     Route: 065

REACTIONS (1)
  - Penis injury [Recovered/Resolved]
